FAERS Safety Report 5790221-8 (Version None)
Quarter: 2008Q2

REPORT INFORMATION
  Report Type: 
  Country: None (occurrence: None)
  Receive Date: 20080626
  Receipt Date: 20080327
  Transmission Date: 20081010
  Serious: No
  Sender: FDA-Public Use
  Company Number: A0705670A

PATIENT

DRUGS (3)
  1. ALLI [Suspect]
     Indication: DRUG USE FOR UNKNOWN INDICATION
     Dates: start: 20080103
  2. VITAMINS [Concomitant]
  3. SUPPLEMENT [Concomitant]

REACTIONS (7)
  - ACNE [None]
  - ASTHENIA [None]
  - DRUG INEFFECTIVE [None]
  - OILY SKIN [None]
  - STRESS [None]
  - THERAPEUTIC RESPONSE UNEXPECTED [None]
  - WEIGHT FLUCTUATION [None]
